FAERS Safety Report 16255934 (Version 1)
Quarter: 2019Q2

REPORT INFORMATION
  Report Type: Spontaneous
  Country: US (occurrence: US)
  Receive Date: 20190430
  Receipt Date: 20190430
  Transmission Date: 20190711
  Serious: No
  Sender: FDA-Public Use
  Company Number: US-PFIZER INC-2019179072

PATIENT
  Sex: Female

DRUGS (2)
  1. ADVIL [Suspect]
     Active Substance: IBUPROFEN
     Indication: MUSCLE SPASMS
     Dosage: UNK, AS NEEDED
  2. PREDNISONE. [Suspect]
     Active Substance: PREDNISONE
     Dosage: UNK, DAILY

REACTIONS (1)
  - Visual impairment [Unknown]
